FAERS Safety Report 16558352 (Version 1)
Quarter: 2019Q3

REPORT INFORMATION
  Report Type: Spontaneous
  Country: IT (occurrence: IT)
  Receive Date: 20190711
  Receipt Date: 20190711
  Transmission Date: 20191004
  Serious: Yes (Hospitalization)
  Sender: FDA-Public Use
  Company Number: PHHY2019IT159576

PATIENT
  Age: 78 Year
  Sex: Female

DRUGS (2)
  1. VOLTAREN [Suspect]
     Active Substance: DICLOFENAC SODIUM
     Indication: BACK PAIN
     Dosage: 150 MG, QD
     Route: 030
     Dates: start: 20190501, end: 20190701
  2. OKI [Suspect]
     Active Substance: KETOPROFEN LYSINE
     Indication: BACK PAIN
     Dosage: 240 MG, QD
     Route: 048
     Dates: start: 20190501, end: 20190701

REACTIONS (3)
  - Haematemesis [Recovering/Resolving]
  - Substance abuse [Recovering/Resolving]
  - Duodenal ulcer [Recovering/Resolving]

NARRATIVE: CASE EVENT DATE: 20190701
